FAERS Safety Report 22105565 (Version 1)
Quarter: 2023Q1

REPORT INFORMATION
  Report Type: Other
  Country: GB (occurrence: None)
  Receive Date: 20230317
  Receipt Date: 20230317
  Transmission Date: 20230417
  Serious: Yes (Hospitalization, Other)
  Sender: FDA-Public Use
  Company Number: GB-ROCHE-2387373

PATIENT
  Age: 81 Year
  Sex: Male

DRUGS (2)
  1. ESBRIET [Suspect]
     Active Substance: PIRFENIDONE
     Indication: Idiopathic pulmonary fibrosis
     Route: 048
     Dates: start: 20190725
  2. ESBRIET [Suspect]
     Active Substance: PIRFENIDONE
     Indication: Product used for unknown indication
     Route: 048
     Dates: start: 201907

REACTIONS (5)
  - Hypoacusis [Unknown]
  - Malaise [Unknown]
  - Hiccups [Unknown]
  - Feeling abnormal [Unknown]
  - Cardiac disorder [Unknown]
